FAERS Safety Report 8086220-6 (Version None)
Quarter: 2012Q1

REPORT INFORMATION
  Report Type: 
  Country: None (occurrence: None)
  Receive Date: 20120128
  Receipt Date: 20110418
  Transmission Date: 20120608
  Serious: No
  Sender: FDA-Public Use
  Company Number: US-ABBOTT-11P-163-0719665-00

PATIENT
  Sex: Female
  Weight: 54.48 kg

DRUGS (7)
  1. RITALIN [Concomitant]
     Indication: ATTENTION DEFICIT/HYPERACTIVITY DISORDER
     Route: 048
  2. VICODIN ES [Concomitant]
     Indication: HEADACHE
  3. HUMIRA [Suspect]
     Indication: RHEUMATOID ARTHRITIS
     Route: 058
     Dates: start: 20100101, end: 20110301
  4. HUMIRA [Suspect]
     Indication: RHEUMATOID ARTHRITIS
     Route: 058
     Dates: start: 20040101, end: 20100101
  5. VICODIN ES [Concomitant]
     Indication: ARTHRALGIA
     Dosage: AS NEEDED: 3 IN 1 DAYS
     Route: 048
     Dates: start: 20040101
  6. IMITREX [Concomitant]
     Indication: HEADACHE
     Route: 048
  7. IBUPROFEN [Concomitant]
     Indication: ARTHRALGIA
     Route: 048

REACTIONS (2)
  - INJECTION SITE PAIN [None]
  - PAIN [None]
